FAERS Safety Report 8771645 (Version 1)
Quarter: 2012Q4

REPORT INFORMATION
  Report Type: 
  Country: US (occurrence: US)
  Receive Date: 20120905
  Receipt Date: 20120905
  Transmission Date: 20130627
  Serious: No
  Sender: FDA-Public Use
  Company Number: US-ASTRAZENECA-2012SE61019

PATIENT
  Age: 83 Year
  Sex: Male
  Weight: 101.2 kg

DRUGS (3)
  1. BRILINTA [Suspect]
     Indication: DEVICE OCCLUSION
     Route: 048
     Dates: start: 20120725
  2. ASPIRIN [Concomitant]
  3. ASPIRIN [Concomitant]

REACTIONS (2)
  - Epistaxis [Recovered/Resolved]
  - Off label use [Unknown]
